FAERS Safety Report 8781081 (Version 2)
Quarter: 2013Q4

REPORT INFORMATION
  Report Type: Spontaneous
  Country: US (occurrence: US)
  Receive Date: 20120913
  Receipt Date: 20131003
  Transmission Date: 20140711
  Serious: No
  Sender: FDA-Public Use
  Company Number: US-009507513-1208USA012142

PATIENT
  Sex: Female
  Weight: 81.63 kg

DRUGS (1)
  1. MAXALT [Suspect]
     Dosage: UNK
     Route: 048
     Dates: start: 2009

REACTIONS (1)
  - Headache [Unknown]
